FAERS Safety Report 4771933-1 (Version None)
Quarter: 2005Q3

REPORT INFORMATION
  Report Type: 
  Country: None (occurrence: None)
  Receive Date: 20050916
  Receipt Date: 20050914
  Transmission Date: 20060218
  Serious: Yes (Life-Threatening, Hospitalization)
  Sender: FDA-Public Use
  Company Number: US-MERCK-0509USA01823

PATIENT
  Age: 53 Year
  Sex: Male

DRUGS (4)
  1. VIOXX [Suspect]
     Indication: INTERVERTEBRAL DISC DEGENERATION
     Route: 048
     Dates: start: 20030101
  2. ZANTAC [Concomitant]
     Route: 065
  3. PROZAC [Concomitant]
     Route: 065
  4. MICARDIS [Concomitant]
     Route: 065

REACTIONS (1)
  - MYOCARDIAL INFARCTION [None]
